FAERS Safety Report 9838432 (Version 2)
Quarter: 2014Q1

REPORT INFORMATION
  Report Type: Report from Study
  Country: DE (occurrence: DE)
  Receive Date: 20140123
  Receipt Date: 20140123
  Transmission Date: 20141002
  Serious: Yes (Hospitalization)
  Sender: FDA-Public Use
  Company Number: PHHY2013DE057589

PATIENT
  Sex: Female

DRUGS (4)
  1. METFORMIN, VILDAGLIPTIN [Suspect]
     Indication: TYPE 2 DIABETES MELLITUS
     Dosage: 1 DF ((METF 2000 MG, VILD 100 MG), DAILY
     Dates: start: 20121105
  2. LISINOPRIL [Concomitant]
     Indication: HYPERTENSION
     Dosage: 20 MG, PER DAY
     Dates: start: 2008
  3. AMLODIPINE [Concomitant]
     Indication: HYPERTENSION
     Dosage: 10 MG, PER DAY
     Dates: start: 2008
  4. ACID ACETYLSALICYLIC [Concomitant]
     Indication: HYPERTENSION
     Dosage: 100 MG, DAILY
     Dates: start: 2008, end: 20130420

REACTIONS (2)
  - Gastritis [Recovered/Resolved]
  - Abdominal pain upper [Recovered/Resolved]
